FAERS Safety Report 13860484 (Version 2)
Quarter: 2017Q3

REPORT INFORMATION
  Report Type: Report from Study
  Country: US (occurrence: US)
  Receive Date: 20170811
  Receipt Date: 20170912
  Transmission Date: 20171127
  Serious: Yes (Death)
  Sender: FDA-Public Use
  Company Number: US-PFIZER INC-2017343281

PATIENT
  Age: 50 Year
  Sex: Male

DRUGS (2)
  1. ARGATROBAN. [Suspect]
     Active Substance: ARGATROBAN
     Dosage: UNK
  2. NOREPINEPHRINE BITARTRATE. [Suspect]
     Active Substance: NOREPINEPHRINE BITARTRATE
     Dosage: UNK

REACTIONS (6)
  - Skin necrosis [Fatal]
  - Leukocytosis [Fatal]
  - Thrombocytopenia [Fatal]
  - Rhabdomyolysis [Fatal]
  - Toxicity to various agents [Fatal]
  - Coagulopathy [Fatal]
